FAERS Safety Report 16309636 (Version 1)
Quarter: 2019Q2

REPORT INFORMATION
  Report Type: Spontaneous
  Country: US (occurrence: US)
  Receive Date: 20190513
  Receipt Date: 20190513
  Transmission Date: 20190711
  Serious: Yes (Disabling)
  Sender: FDA-Public Use
  Company Number: None

PATIENT
  Age: 33 Year
  Sex: Female
  Weight: 91.35 kg

DRUGS (6)
  1. SPIRONOLACTONE, [Concomitant]
  2. LAMOTROGINE [Suspect]
     Active Substance: LAMOTRIGINE
     Indication: OBSESSIVE-COMPULSIVE DISORDER
     Route: 048
     Dates: start: 20190101, end: 20190513
  3. METFORMIN [Concomitant]
     Active Substance: METFORMIN HYDROCHLORIDE
  4. LAMOTROGINE 175 MG. [Concomitant]
  5. PAXIL 20 MG., [Concomitant]
  6. LAMOTROGINE [Suspect]
     Active Substance: LAMOTRIGINE
     Indication: ANXIETY
     Route: 048
     Dates: start: 20190101, end: 20190513

REACTIONS (3)
  - Hot flush [None]
  - Hyperhidrosis [None]
  - Pollakiuria [None]

NARRATIVE: CASE EVENT DATE: 20190513
